FAERS Safety Report 8798961 (Version 4)
Quarter: 2013Q4

REPORT INFORMATION
  Report Type: Report from Study
  Country: JP (occurrence: JP)
  Receive Date: 20120920
  Receipt Date: 20131030
  Transmission Date: 20140711
  Serious: Yes (Hospitalization, Other)
  Sender: FDA-Public Use
  Company Number: JP-VERTEX PHARMACEUTICAL INC.-AE-2012-003529

PATIENT
  Age: 49 Year
  Sex: Female

DRUGS (21)
  1. VX-950 (TELAPREVIR) [Suspect]
     Indication: CHRONIC HEPATITIS C
     Dosage: 2250 MG, QD
     Route: 048
     Dates: start: 20120125, end: 20120301
  2. VX-950 (TELAPREVIR) [Suspect]
     Dosage: 1500 MG/QD
     Route: 048
     Dates: start: 20120302, end: 20120302
  3. PEGINTRON [Suspect]
     Indication: CHRONIC HEPATITIS C
     Dosage: 1.3 ?G/KG, QW
     Route: 058
     Dates: start: 20120125, end: 20120229
  4. PEGINTRON [Suspect]
     Dosage: 1.5 ?G/KG, QW
     Route: 058
     Dates: start: 20120314, end: 20130425
  5. PEGINTRON [Suspect]
     Dosage: 40 ?G/KG, UNK
     Route: 058
     Dates: start: 20120502, end: 20120502
  6. PEGINTRON [Suspect]
     Dosage: 60 ?G/KG, UNK
     Route: 058
     Dates: start: 20120509, end: 20120606
  7. PEGINTRON [Suspect]
     Dosage: 80 ?G/KG, UNK
     Route: 058
     Dates: start: 20120613, end: 20120704
  8. REBETOL [Suspect]
     Indication: CHRONIC HEPATITIS C
     Dosage: 800 MG, QD
     Route: 048
     Dates: start: 20120125, end: 20120228
  9. REBETOL [Suspect]
     Dosage: 400 MG, QD
     Route: 048
     Dates: start: 20120229, end: 20120305
  10. REBETOL [Suspect]
     Dosage: 800 MG, QD
     Route: 048
     Dates: start: 20120314, end: 20120711
  11. DESYREL [Suspect]
     Indication: DEPRESSION
     Dosage: 50 MG, QD
     Route: 048
     Dates: end: 20120430
  12. LEXAPRO [Concomitant]
     Indication: DEPRESSION
     Dosage: 10 MG, QD
     Route: 048
  13. LOXONIN [Concomitant]
     Dosage: UNK, PRN
     Route: 048
  14. MUCOSTA [Concomitant]
     Dosage: 300 MG, QD
     Route: 048
  15. APHTASOLON [Concomitant]
     Dosage: UNK, PRN
     Route: 051
     Dates: start: 20120215, end: 20120222
  16. HACHIAZULE [Concomitant]
     Dosage: UNK UNK, PRN
     Route: 051
     Dates: start: 20120222, end: 20120229
  17. PURSENNID [Concomitant]
     Dosage: UNK UNK, PRN
     Route: 048
     Dates: end: 20120711
  18. NAUZELIN [Concomitant]
     Dosage: 3 TAB, QD
     Route: 048
     Dates: start: 20120522, end: 20120526
  19. LAC-B [Concomitant]
     Dosage: 3 G, QD
     Route: 048
     Dates: start: 20120522, end: 20120526
  20. PRIMPERAN [Concomitant]
     Dosage: 1 AMP, PRN
     Route: 042
     Dates: start: 20120522, end: 20120523
  21. VITAMEDIN [Concomitant]
     Dosage: 3 TABS, QD
     Route: 048
     Dates: start: 20120629, end: 20120711

REACTIONS (3)
  - Dizziness [Recovered/Resolved]
  - Asthenia [Recovered/Resolved]
  - Neutrophil count decreased [Recovered/Resolved]
